FAERS Safety Report 8623158-7 (Version None)
Quarter: 2012Q3

REPORT INFORMATION
  Report Type: 
  Country: None (occurrence: None)
  Receive Date: 20120827
  Receipt Date: 20120820
  Transmission Date: 20120928
  Serious: Yes (Death)
  Sender: FDA-Public Use
  Company Number: FR-SANOFI-AVENTIS-2012SA059554

PATIENT
  Age: 72 Year
  Sex: Female

DRUGS (12)
  1. ZOMETA [Concomitant]
     Route: 065
  2. NEULASTA [Concomitant]
     Route: 065
     Dates: start: 20120519
  3. DURAGESIC-100 [Concomitant]
     Route: 065
  4. TAXOTERE [Suspect]
     Route: 042
     Dates: start: 20120518, end: 20120518
  5. CORTICOSTEROIDS [Concomitant]
     Route: 065
  6. TAXOTERE [Suspect]
     Route: 042
     Dates: start: 20120424, end: 20120424
  7. TAXOTERE [Suspect]
     Route: 042
     Dates: start: 20120608, end: 20120608
  8. ACETAMINOPHEN [Concomitant]
     Route: 065
  9. VITAMIN D [Concomitant]
     Route: 065
  10. FENTANYL [Concomitant]
     Route: 065
  11. AVIBON [Concomitant]
     Route: 065
  12. TRAMADOL HCL [Concomitant]
     Route: 065

REACTIONS (1)
  - ACUTE RESPIRATORY DISTRESS SYNDROME [None]
